FAERS Safety Report 19995950 (Version 2)
Quarter: 2021Q4

REPORT INFORMATION
  Report Type: Other
  Country: US (occurrence: US)
  Receive Date: 20211026
  Receipt Date: 20211122
  Transmission Date: 20220303
  Serious: No
  Sender: FDA-Public Use
  Company Number: US-NEUROCRINE BIOSCIENCES INC.-2021NBI05965

PATIENT

DRUGS (7)
  1. INGREZZA [Suspect]
     Active Substance: VALBENAZINE
     Indication: Tardive dyskinesia
     Dosage: 40 MILLIGRAM, QD
     Route: 048
     Dates: start: 20210827
  2. QUETIAPINE [Concomitant]
     Active Substance: QUETIAPINE
     Indication: Affective disorder
     Dosage: 100 MILLIGRAM, QHS
     Route: 048
     Dates: start: 2010
  3. QUETIAPINE [Concomitant]
     Active Substance: QUETIAPINE
     Indication: Psychotic disorder
     Dosage: 100 MILLIGRAM, TID (PRN)
     Route: 048
     Dates: start: 20210818
  4. QUETIAPINE [Concomitant]
     Active Substance: QUETIAPINE
     Indication: Anxiety
  5. QUETIAPINE [Concomitant]
     Active Substance: QUETIAPINE
     Indication: Agitation
  6. DULOXETINE [Concomitant]
     Active Substance: DULOXETINE
     Indication: Depression
     Dosage: 20 MILLIGRAM, BID
     Route: 048
     Dates: start: 20210721
  7. DULOXETINE [Concomitant]
     Active Substance: DULOXETINE
     Indication: Anxiety

REACTIONS (6)
  - Somnolence [Unknown]
  - Loss of consciousness [Recovering/Resolving]
  - Syncope [Recovering/Resolving]
  - Eye contusion [Recovering/Resolving]
  - Concussion [Recovering/Resolving]
  - Fatigue [Unknown]

NARRATIVE: CASE EVENT DATE: 20211005
